FAERS Safety Report 6055036-4 (Version None)
Quarter: 2009Q1

REPORT INFORMATION
  Report Type: 
  Country: None (occurrence: None)
  Receive Date: 20090122
  Receipt Date: 20090113
  Transmission Date: 20090719
  Serious: Yes (Life-Threatening)
  Sender: FDA-Public Use
  Company Number: 2009AL000294

PATIENT
  Age: 44 Year
  Sex: Female

DRUGS (4)
  1. DIPYRIDAMOLE [Suspect]
     Indication: SCAN MYOCARDIAL PERFUSION
     Dosage: 56 MG;IV
     Route: 042
     Dates: start: 20081217, end: 20081217
  2. SIMVASTATIN [Concomitant]
  3. OMEPRAZOLE [Concomitant]
  4. GYLCERYL TRINITRATE [Concomitant]

REACTIONS (1)
  - ANAPHYLACTIC REACTION [None]
